FAERS Safety Report 5173293-3 (Version None)
Quarter: 2006Q4

REPORT INFORMATION
  Report Type: 
  Country: None (occurrence: None)
  Receive Date: 20061206
  Receipt Date: 20061121
  Transmission Date: 20070319
  Serious: Yes (Death)
  Sender: FDA-Public Use
  Company Number: 2006S1007031

PATIENT
  Age: 53 Year
  Sex: Male
  Weight: 87.5442 kg

DRUGS (10)
  1. CLOZAPINE [Suspect]
     Indication: SCHIZOPHRENIA, UNDIFFERENTIATED TYPE
     Dosage: 300 MG; TID; PO
     Route: 048
     Dates: end: 20060701
  2. PERPHENAZINE [Concomitant]
  3. BENZTROPINE MESYLATE [Concomitant]
  4. DOXEPIN HCL [Concomitant]
  5. PAROXETINE HCL [Concomitant]
  6. MULTI-VITAMINS [Concomitant]
  7. ESOMEPRAZOLE MAGNESIUM [Concomitant]
  8. SULFADIAZINE SILVER [Concomitant]
  9. HYDROXYZINE [Concomitant]
  10. DOCUSATE SODIUM [Concomitant]

REACTIONS (4)
  - BALANCE DISORDER [None]
  - CARDIAC ARREST [None]
  - FALL [None]
  - MALAISE [None]
